FAERS Safety Report 6900729-7 (Version None)
Quarter: 2010Q3

REPORT INFORMATION
  Report Type: 
  Country: None (occurrence: None)
  Receive Date: 20100730
  Receipt Date: 20100723
  Transmission Date: 20110219
  Serious: Yes (Other)
  Sender: FDA-Public Use
  Company Number: IE-1182726

PATIENT

DRUGS (1)
  1. MAXITROL [Suspect]
     Route: 047
     Dates: start: 20100601

REACTIONS (1)
  - BRADYCARDIA [None]
